FAERS Safety Report 11575618 (Version 1)
Quarter: 2015Q3

REPORT INFORMATION
  Report Type: Spontaneous
  Country: US (occurrence: None)
  Receive Date: 20150929
  Receipt Date: 20150929
  Transmission Date: 20151125
  Serious: Yes (Hospitalization)
  Sender: FDA-Public Use
  Company Number: None

PATIENT
  Age: 51 Year
  Sex: Male
  Weight: 91.3 kg

DRUGS (2)
  1. CISPLATIN. [Suspect]
     Active Substance: CISPLATIN
     Dosage: CYCLE 3 DOSE WAS REDUCED DUE TO NEUROPATHY AND NEUTROPENIA
     Dates: end: 20150624
  2. ETOPOSIDE (VP-16) [Suspect]
     Active Substance: ETOPOSIDE
     Dosage: CYCLE 3 DOSE HAD BEEN REDUCED PRIOR TO EVENT DUE TO NEUROPATHY AND NEUTROPENIA
     Dates: end: 20150626

REACTIONS (2)
  - White blood cell count decreased [None]
  - Febrile neutropenia [None]

NARRATIVE: CASE EVENT DATE: 20150708
